FAERS Safety Report 4932726-5 (Version None)
Quarter: 2006Q1

REPORT INFORMATION
  Report Type: 
  Country: None (occurrence: None)
  Receive Date: 20060301
  Receipt Date: 20060301
  Transmission Date: 20060701
  Serious: Yes (Life-Threatening, Hospitalization)
  Sender: FDA-Public Use
  Company Number: None

PATIENT
  Sex: Male

DRUGS (1)
  1. BACTRIM [Suspect]
     Dosage: PO
     Route: 048
     Dates: start: 20060101, end: 20060117

REACTIONS (7)
  - DERMATITIS BULLOUS [None]
  - LIP BLISTER [None]
  - ORAL MUCOSAL BLISTERING [None]
  - ORAL MUCOSAL EXFOLIATION [None]
  - RASH MACULAR [None]
  - SKIN EXFOLIATION [None]
  - SKIN HAEMORRHAGE [None]
